FAERS Safety Report 12798689 (Version 1)
Quarter: 2016Q3

REPORT INFORMATION
  Report Type: Spontaneous
  Country: US (occurrence: US)
  Receive Date: 20160930
  Receipt Date: 20160930
  Transmission Date: 20161109
  Serious: No
  Sender: FDA-Public Use
  Company Number: US-BAYER-2016-189285

PATIENT
  Age: 50 Year
  Sex: Female
  Weight: 41.27 kg

DRUGS (3)
  1. AMITIZA [Concomitant]
     Active Substance: LUBIPROSTONE
     Dosage: UNK
  2. MIRALAX [Suspect]
     Active Substance: POLYETHYLENE GLYCOL 3350
     Indication: GASTROINTESTINAL DISORDER
  3. MIRALAX [Suspect]
     Active Substance: POLYETHYLENE GLYCOL 3350
     Indication: COLONOSCOPY
     Dosage: UNK
     Route: 048

REACTIONS (1)
  - Intercepted drug prescribing error [Unknown]
